FAERS Safety Report 21328596 (Version 16)
Quarter: 2025Q4

REPORT INFORMATION
  Report Type: Spontaneous
  Country: US (occurrence: US)
  Receive Date: 20220913
  Receipt Date: 20251209
  Transmission Date: 20260118
  Serious: Yes (Other)
  Sender: CSL BEHRING
  Company Number: US-BEH-2022149332

PATIENT
  Age: 55 Year
  Sex: Male

DRUGS (54)
  1. IDELVION [Suspect]
     Active Substance: COAGULATION FACTOR IX RECOMBINANT HUMAN
     Indication: Factor IX deficiency
     Dosage: 4000 INTERNATIONAL UNIT, QOW
     Route: 042
     Dates: start: 20220301
  2. IDELVION [Suspect]
     Active Substance: COAGULATION FACTOR IX RECOMBINANT HUMAN
     Indication: Factor IX deficiency
     Dosage: 4000 INTERNATIONAL UNIT, QOW
     Route: 042
     Dates: start: 20220301
  3. IDELVION [Suspect]
     Active Substance: COAGULATION FACTOR IX RECOMBINANT HUMAN
     Indication: Haemorrhage
     Dosage: 900 INTERNATIONAL UNIT, QOW
     Route: 042
     Dates: start: 20220702
  4. IDELVION [Suspect]
     Active Substance: COAGULATION FACTOR IX RECOMBINANT HUMAN
     Indication: Haemorrhage
     Dosage: 900 INTERNATIONAL UNIT, QOW
     Route: 042
     Dates: start: 20220702
  5. IDELVION [Suspect]
     Active Substance: COAGULATION FACTOR IX RECOMBINANT HUMAN
     Indication: Prophylaxis
     Dosage: 8800 (7920-9680) INTERNATIONAL UNIT TOTAL, QOW (EVERY TWO WEEKS FOR PROPHY)
     Route: 042
     Dates: start: 202202
  6. IDELVION [Suspect]
     Active Substance: COAGULATION FACTOR IX RECOMBINANT HUMAN
     Indication: Prophylaxis
     Dosage: 8800 (7920-9680) INTERNATIONAL UNIT TOTAL, QOW (EVERY TWO WEEKS FOR PROPHY)
     Route: 042
     Dates: start: 202202
  7. IDELVION [Suspect]
     Active Substance: COAGULATION FACTOR IX RECOMBINANT HUMAN
     Indication: Gingival bleeding
     Dosage: 4400 (3960-4840) INTERNATIONAL UNIT TOTAL, PRN (FOR MINOR BLEEDING)
     Route: 042
     Dates: start: 202202
  8. IDELVION [Suspect]
     Active Substance: COAGULATION FACTOR IX RECOMBINANT HUMAN
     Indication: Gingival bleeding
     Dosage: 4400 (3960-4840) INTERNATIONAL UNIT TOTAL, PRN (FOR MINOR BLEEDING)
     Route: 042
     Dates: start: 202202
  9. IDELVION [Suspect]
     Active Substance: COAGULATION FACTOR IX RECOMBINANT HUMAN
     Indication: Gingival bleeding
     Dosage: 8800 (7920-9680)  INTERNATIONAL UNIT TOTAL, PRN (FOR JOINT OR SEVERE BLEEDING)
     Route: 042
     Dates: start: 202202
  10. IDELVION [Suspect]
     Active Substance: COAGULATION FACTOR IX RECOMBINANT HUMAN
     Indication: Gingival bleeding
     Dosage: 8800 (7920-9680)  INTERNATIONAL UNIT TOTAL, PRN (FOR JOINT OR SEVERE BLEEDING)
     Route: 042
     Dates: start: 202202
  11. IDELVION [Suspect]
     Active Substance: COAGULATION FACTOR IX RECOMBINANT HUMAN
     Indication: Haemarthrosis
     Dosage: 1 DOSAGE FORM, PRN(4 DOSES)
     Route: 065
     Dates: start: 20231218
  12. IDELVION [Suspect]
     Active Substance: COAGULATION FACTOR IX RECOMBINANT HUMAN
     Indication: Haemarthrosis
     Dosage: 1 DOSAGE FORM, PRN(4 DOSES)
     Route: 065
     Dates: start: 20231218
  13. IDELVION [Suspect]
     Active Substance: COAGULATION FACTOR IX RECOMBINANT HUMAN
     Dosage: 4 DF, PRN (2 MAJOR DOSES AND 2 MINOR DOSES)
     Route: 065
  14. IDELVION [Suspect]
     Active Substance: COAGULATION FACTOR IX RECOMBINANT HUMAN
     Dosage: 4 DF, PRN (2 MAJOR DOSES AND 2 MINOR DOSES)
     Route: 065
  15. IDELVION [Suspect]
     Active Substance: COAGULATION FACTOR IX RECOMBINANT HUMAN
     Dosage: 2 DF, PRN
     Route: 065
     Dates: start: 20240619
  16. IDELVION [Suspect]
     Active Substance: COAGULATION FACTOR IX RECOMBINANT HUMAN
     Dosage: 2 DF, PRN
     Route: 065
     Dates: start: 20240619
  17. IDELVION [Suspect]
     Active Substance: COAGULATION FACTOR IX RECOMBINANT HUMAN
     Dosage: 8000 IU, QOW
     Route: 042
     Dates: start: 202202
  18. IDELVION [Suspect]
     Active Substance: COAGULATION FACTOR IX RECOMBINANT HUMAN
     Dosage: 8000 IU, QOW
     Route: 042
     Dates: start: 202202
  19. IDELVION [Suspect]
     Active Substance: COAGULATION FACTOR IX RECOMBINANT HUMAN
     Dosage: 1640 IU, INFUSE 4320 UNITS (3888-4752), PRN
     Route: 042
     Dates: start: 202202
  20. IDELVION [Suspect]
     Active Substance: COAGULATION FACTOR IX RECOMBINANT HUMAN
     Dosage: 1640 IU, INFUSE 4320 UNITS (3888-4752), PRN
     Route: 042
     Dates: start: 202202
  21. IDELVION [Suspect]
     Active Substance: COAGULATION FACTOR IX RECOMBINANT HUMAN
     Dosage: 8640 IU, INFUSE 8640 UNITS (7776-9504), QOW
     Route: 042
     Dates: start: 202202
  22. IDELVION [Suspect]
     Active Substance: COAGULATION FACTOR IX RECOMBINANT HUMAN
     Dosage: 8640 IU, INFUSE 8640 UNITS (7776-9504), QOW
     Route: 042
     Dates: start: 202202
  23. IDELVION [Suspect]
     Active Substance: COAGULATION FACTOR IX RECOMBINANT HUMAN
     Dosage: 8640 IU, INFUSE 8640 UNITS (7776-9504), PRN
     Route: 042
     Dates: start: 202202
  24. IDELVION [Suspect]
     Active Substance: COAGULATION FACTOR IX RECOMBINANT HUMAN
     Dosage: 8640 IU, INFUSE 8640 UNITS (7776-9504), PRN
     Route: 042
     Dates: start: 202202
  25. IDELVION [Suspect]
     Active Substance: COAGULATION FACTOR IX RECOMBINANT HUMAN
     Dosage: 4320 IU, PRN
     Route: 042
     Dates: start: 202202
  26. IDELVION [Suspect]
     Active Substance: COAGULATION FACTOR IX RECOMBINANT HUMAN
     Dosage: 4320 IU, PRN
     Route: 042
     Dates: start: 202202
  27. IDELVION [Suspect]
     Active Substance: COAGULATION FACTOR IX RECOMBINANT HUMAN
     Dosage: 4590 IU, PRN (4131-5049) IF NEEDED FOR MINOR BLEEDING
     Route: 042
     Dates: start: 202202
  28. IDELVION [Suspect]
     Active Substance: COAGULATION FACTOR IX RECOMBINANT HUMAN
     Dosage: 4590 IU, PRN (4131-5049) IF NEEDED FOR MINOR BLEEDING
     Route: 042
     Dates: start: 202202
  29. IDELVION [Suspect]
     Active Substance: COAGULATION FACTOR IX RECOMBINANT HUMAN
     Dosage: 2180 IU
     Route: 042
     Dates: start: 202202
  30. IDELVION [Suspect]
     Active Substance: COAGULATION FACTOR IX RECOMBINANT HUMAN
     Dosage: 2180 IU
     Route: 042
     Dates: start: 202202
  31. IDELVION [Suspect]
     Active Substance: COAGULATION FACTOR IX RECOMBINANT HUMAN
     Dosage: 9180 IU, QOW(AS NEEDED)
     Route: 042
     Dates: start: 202202
  32. IDELVION [Suspect]
     Active Substance: COAGULATION FACTOR IX RECOMBINANT HUMAN
     Dosage: 9180 IU, QOW(AS NEEDED)
     Route: 042
     Dates: start: 202202
  33. IDELVION [Suspect]
     Active Substance: COAGULATION FACTOR IX RECOMBINANT HUMAN
     Indication: Factor IX deficiency
     Dosage: 8800 (7920-9680) INTERNATIONAL UNIT TOTAL, QOW (EVERY TWO WEEKS FOR PROPHY)
     Route: 042
     Dates: start: 202202
  34. IDELVION [Suspect]
     Active Substance: COAGULATION FACTOR IX RECOMBINANT HUMAN
     Indication: Factor IX deficiency
     Dosage: 8800 (7920-9680) INTERNATIONAL UNIT TOTAL, QOW (EVERY TWO WEEKS FOR PROPHY)
     Route: 042
     Dates: start: 202202
  35. IDELVION [Suspect]
     Active Substance: COAGULATION FACTOR IX RECOMBINANT HUMAN
     Indication: Haemorrhage
     Dosage: 4400 (3960-4840) INTERNATIONAL UNIT TOTAL, PRN (FOR MINOR BLEEDING)
     Route: 042
     Dates: start: 202202
  36. IDELVION [Suspect]
     Active Substance: COAGULATION FACTOR IX RECOMBINANT HUMAN
     Indication: Haemorrhage
     Dosage: 4400 (3960-4840) INTERNATIONAL UNIT TOTAL, PRN (FOR MINOR BLEEDING)
     Route: 042
     Dates: start: 202202
  37. IDELVION [Suspect]
     Active Substance: COAGULATION FACTOR IX RECOMBINANT HUMAN
     Indication: Prophylaxis
     Dosage: 8800 (7920-9680)  INTERNATIONAL UNIT TOTAL, PRN (FOR JOINT OR SEVERE BLEEDING)
     Route: 042
     Dates: start: 202202
  38. IDELVION [Suspect]
     Active Substance: COAGULATION FACTOR IX RECOMBINANT HUMAN
     Indication: Prophylaxis
     Dosage: 8800 (7920-9680)  INTERNATIONAL UNIT TOTAL, PRN (FOR JOINT OR SEVERE BLEEDING)
     Route: 042
     Dates: start: 202202
  39. IDELVION [Suspect]
     Active Substance: COAGULATION FACTOR IX RECOMBINANT HUMAN
     Indication: Gingival bleeding
     Dosage: 8000 IU, QOW
     Route: 042
     Dates: start: 202202
  40. IDELVION [Suspect]
     Active Substance: COAGULATION FACTOR IX RECOMBINANT HUMAN
     Indication: Gingival bleeding
     Dosage: 8000 IU, QOW
     Route: 042
     Dates: start: 202202
  41. IDELVION [Suspect]
     Active Substance: COAGULATION FACTOR IX RECOMBINANT HUMAN
     Indication: Haemarthrosis
     Dosage: 2 DF, PRN
     Route: 042
     Dates: start: 20240619
  42. IDELVION [Suspect]
     Active Substance: COAGULATION FACTOR IX RECOMBINANT HUMAN
     Indication: Haemarthrosis
     Dosage: 2 DF, PRN
     Route: 042
     Dates: start: 20240619
  43. IDELVION [Suspect]
     Active Substance: COAGULATION FACTOR IX RECOMBINANT HUMAN
     Dosage: 7000 IU, INFUSE 8640 UNITS (7776-9504), QOW
     Route: 042
     Dates: start: 202202
  44. IDELVION [Suspect]
     Active Substance: COAGULATION FACTOR IX RECOMBINANT HUMAN
     Dosage: 7000 IU, INFUSE 8640 UNITS (7776-9504), QOW
     Route: 042
     Dates: start: 202202
  45. IDELVION [Suspect]
     Active Substance: COAGULATION FACTOR IX RECOMBINANT HUMAN
     Dosage: 8640 IU, INFUSE 8640 UNITS (7776-9504), QOW
     Route: 042
     Dates: start: 202202
  46. IDELVION [Suspect]
     Active Substance: COAGULATION FACTOR IX RECOMBINANT HUMAN
     Dosage: 8640 IU, INFUSE 8640 UNITS (7776-9504), QOW
     Route: 042
     Dates: start: 202202
  47. IDELVION [Suspect]
     Active Substance: COAGULATION FACTOR IX RECOMBINANT HUMAN
     Dosage: 8640 IU, INFUSE 8640 UNITS (7776-9504), PRN
     Route: 042
     Dates: start: 202202
  48. IDELVION [Suspect]
     Active Substance: COAGULATION FACTOR IX RECOMBINANT HUMAN
     Dosage: 8640 IU, INFUSE 8640 UNITS (7776-9504), PRN
     Route: 042
     Dates: start: 202202
  49. IDELVION [Suspect]
     Active Substance: COAGULATION FACTOR IX RECOMBINANT HUMAN
     Dosage: 4320 IU, PRN
     Route: 042
     Dates: start: 202202
  50. IDELVION [Suspect]
     Active Substance: COAGULATION FACTOR IX RECOMBINANT HUMAN
     Dosage: 4320 IU, PRN
     Route: 042
     Dates: start: 202202
  51. IDELVION [Suspect]
     Active Substance: COAGULATION FACTOR IX RECOMBINANT HUMAN
     Dosage: 9180 IU, QOW(SLOW IV PUSH EVERY 2 WEEKS FOR PROPHYLAXIS AND AS NEEDED FOR SEVERE/JOINT BLEEDING)
     Route: 042
     Dates: start: 202202
  52. IDELVION [Suspect]
     Active Substance: COAGULATION FACTOR IX RECOMBINANT HUMAN
     Dosage: 9180 IU, QOW(SLOW IV PUSH EVERY 2 WEEKS FOR PROPHYLAXIS AND AS NEEDED FOR SEVERE/JOINT BLEEDING)
     Route: 042
     Dates: start: 202202
  53. IDELVION [Suspect]
     Active Substance: COAGULATION FACTOR IX RECOMBINANT HUMAN
     Dosage: 7000 IU
     Route: 042
     Dates: start: 202202
  54. IDELVION [Suspect]
     Active Substance: COAGULATION FACTOR IX RECOMBINANT HUMAN
     Dosage: 7000 IU
     Route: 042
     Dates: start: 202202

REACTIONS (24)
  - Haemarthrosis [Not Recovered/Not Resolved]
  - Haemorrhage [Unknown]
  - Haemorrhage [Unknown]
  - Haemorrhage [Not Recovered/Not Resolved]
  - Gingival bleeding [Unknown]
  - Arthralgia [Not Recovered/Not Resolved]
  - Gingival bleeding [Unknown]
  - Arthralgia [Unknown]
  - Mouth haemorrhage [Unknown]
  - Gingival bleeding [Not Recovered/Not Resolved]
  - Gingival bleeding [Unknown]
  - Gingival bleeding [Unknown]
  - Gingival bleeding [Unknown]
  - Gingival bleeding [Unknown]
  - Gingival bleeding [Unknown]
  - Arthropod bite [Unknown]
  - Gingival bleeding [Unknown]
  - Gingival bleeding [Unknown]
  - Gingival bleeding [Unknown]
  - Gingival bleeding [Unknown]
  - Gingival bleeding [Recovered/Resolved]
  - Gingival bleeding [Unknown]
  - Gingival bleeding [Unknown]
  - Gingival bleeding [Unknown]

NARRATIVE: CASE EVENT DATE: 20230901
